FAERS Safety Report 7739559-5 (Version None)
Quarter: 2011Q3

REPORT INFORMATION
  Report Type: 
  Country: None (occurrence: None)
  Receive Date: 20110909
  Receipt Date: 20110906
  Transmission Date: 20111222
  Serious: Yes (Other)
  Sender: FDA-Public Use
  Company Number: US-PFIZER INC-2011209027

PATIENT
  Sex: Female
  Weight: 62 kg

DRUGS (4)
  1. SPIRONOLACTONE [Concomitant]
     Indication: HYPERTENSION
     Dosage: UNK
  2. FUROSEMIDE [Concomitant]
     Indication: HYPERTENSION
     Dosage: UNK
  3. REVATIO [Suspect]
     Indication: PULMONARY ARTERIAL HYPERTENSION
     Dosage: 20 MG, UNK
     Route: 048
     Dates: start: 20091101
  4. OXYGEN [Concomitant]
     Dosage: UNK

REACTIONS (3)
  - DEVICE RELATED INFECTION [None]
  - INSOMNIA [None]
  - FIBROMYALGIA [None]
